FAERS Safety Report 9266518 (Version 1)
Quarter: 2013Q2

REPORT INFORMATION
  Report Type: Spontaneous
  Country: US (occurrence: US)
  Receive Date: 20130502
  Receipt Date: 20130502
  Transmission Date: 20140414
  Serious: No
  Sender: FDA-Public Use
  Company Number: US-BAYER-2013-052458

PATIENT
  Sex: Female
  Weight: 95 kg

DRUGS (4)
  1. BETASERON [Suspect]
  2. VESICARE [Concomitant]
     Dosage: 5 MG, UNK
  3. EFFEXOR [Concomitant]
     Dosage: 37.5 MG, UNK
  4. VITAMIN B12 [Concomitant]
     Dosage: 1000 CR

REACTIONS (5)
  - Injection site swelling [Unknown]
  - Injection site bruising [Unknown]
  - Injection site discolouration [Unknown]
  - Fatigue [Unknown]
  - Feeling abnormal [Unknown]
